FAERS Safety Report 12390225 (Version 1)
Quarter: 2016Q2

REPORT INFORMATION
  Report Type: Report from Study
  Country: US (occurrence: US)
  Receive Date: 20160520
  Receipt Date: 20160520
  Transmission Date: 20160815
  Serious: Yes (Other)
  Sender: FDA-Public Use
  Company Number: US-AMGEN-USASP2015119866

PATIENT
  Age: 6 Month

DRUGS (1)
  1. ENBREL [Suspect]
     Active Substance: ETANERCEPT
     Indication: EXPOSURE DURING BREAST FEEDING
     Dosage: 50 MG, QWK
     Route: 063
     Dates: start: 201507

REACTIONS (3)
  - Pneumonia [Unknown]
  - Nasopharyngitis [Unknown]
  - Exposure during breast feeding [Not Recovered/Not Resolved]

NARRATIVE: CASE EVENT DATE: 2015
